FAERS Safety Report 8246604-X (Version None)
Quarter: 2012Q1

REPORT INFORMATION
  Report Type: 
  Country: None (occurrence: None)
  Receive Date: 20120330
  Receipt Date: 20120327
  Transmission Date: 20120608
  Serious: Yes (Other)
  Sender: FDA-Public Use
  Company Number: US-PFIZER INC-2012078704

PATIENT
  Sex: Female
  Weight: 63.492 kg

DRUGS (3)
  1. PREMPRO [Suspect]
     Indication: MENOPAUSAL SYMPTOMS
     Dosage: 0.625/5 MG, UNK
     Route: 048
     Dates: start: 20110101, end: 20120201
  2. ALLOPURINOL [Concomitant]
     Indication: GOUT
     Dosage: UNK
  3. IBUPROFEN [Concomitant]
     Indication: HEADACHE

REACTIONS (2)
  - HEADACHE [None]
  - HAEMORRHAGE [None]
